FAERS Safety Report 4481326-2 (Version None)
Quarter: 2004Q3

REPORT INFORMATION
  Report Type: 
  Country: None (occurrence: None)
  Receive Date: 20040923
  Receipt Date: 20040601
  Transmission Date: 20050211
  Serious: No
  Sender: FDA-Public Use
  Company Number: USA031050410

PATIENT
  Age: 79 Year
  Sex: Female
  Weight: 48 kg

DRUGS (3)
  1. FORTEO [Suspect]
     Indication: OSTEOPOROSIS
     Dosage: 20 UG/DAY
     Dates: start: 20040201, end: 20040501
  2. RHEUMACIN         (INDOMETACIN) [Concomitant]
  3. MICALCIN     (CALCITONIN, SALMON) [Concomitant]

REACTIONS (3)
  - MYALGIA [None]
  - PAIN IN EXTREMITY [None]
  - PHARYNGOLARYNGEAL PAIN [None]
